FAERS Safety Report 20404593 (Version 2)
Quarter: 2022Q4

REPORT INFORMATION
  Report Type: Spontaneous
  Country: PT (occurrence: PT)
  Receive Date: 20220131
  Receipt Date: 20221021
  Transmission Date: 20230113
  Serious: Yes (Life-Threatening, Hospitalization, Other)
  Sender: FDA-Public Use
  Company Number: PT-Accord-252043

PATIENT
  Age: 7 Year
  Sex: Male

DRUGS (4)
  1. AZACITIDINE [Suspect]
     Active Substance: AZACITIDINE
     Indication: Myelodysplastic syndrome
     Dosage: 100 MILLIGRAM/SQ. METER, QD, FIRST AZACITIDINE CYCLE?DURING 5 CONSECUTIVE DAYS
  2. CEFTRIAXONE [Concomitant]
     Active Substance: CEFTRIAXONE
     Indication: Antibiotic therapy
     Dosage: ANTICOAGULANT AND PRESERVATIVE SOLUTION FOR BLOOD
  3. AMOXICILLIN\CLAVULANIC ACID [Concomitant]
     Active Substance: AMOXICILLIN\CLAVULANIC ACID
     Indication: Antibiotic therapy
  4. AZACITIDINE [Suspect]
     Active Substance: AZACITIDINE
     Indication: Myelodysplastic syndrome
     Dosage: 100 MILLIGRAM/SQ. METER, QD (FIRST AZACITIDINE CYCLEDURING 5 CONSECUTIVE DAYS)

REACTIONS (1)
  - Pericardial effusion [Recovered/Resolved]
